FAERS Safety Report 8924135 (Version 1)
Quarter: 2012Q4

REPORT INFORMATION
  Report Type: 
  Country: US (occurrence: None)
  Receive Date: 20121121
  Receipt Date: 20121121
  Transmission Date: 20130627
  Serious: Yes (Hospitalization)
  Sender: FDA-Public Use
  Company Number: None

PATIENT
  Sex: Male
  Weight: 78.8 kg

DRUGS (2)
  1. METHOTREXATE [Suspect]
  2. VINCRISTINE SULFATE [Suspect]

REACTIONS (1)
  - Blood triglycerides increased [None]
